FAERS Safety Report 8813085 (Version 2)
Quarter: 2012Q4

REPORT INFORMATION
  Report Type: 
  Country: US (occurrence: US)
  Receive Date: 20120927
  Receipt Date: 20121219
  Transmission Date: 20130627
  Serious: No
  Sender: FDA-Public Use
  Company Number: US-AMGEN-USASP2012045905

PATIENT
  Age: 62 Year
  Sex: Female
  Weight: 45.91 kg

DRUGS (2)
  1. PROLIA [Suspect]
     Indication: OSTEOPOROSIS
     Dosage: 60 mg, one time dose
     Route: 058
     Dates: start: 20120703
  2. PROLIA [Suspect]

REACTIONS (4)
  - Mental status changes [Unknown]
  - Candidiasis [Unknown]
  - Alopecia [Unknown]
  - Urticaria [Recovered/Resolved]
